FAERS Safety Report 11088201 (Version 1)
Quarter: 2015Q2

REPORT INFORMATION
  Report Type: Spontaneous
  Country: US (occurrence: US)
  Receive Date: 20150504
  Receipt Date: 20150504
  Transmission Date: 20150821
  Serious: Yes (Hospitalization)
  Sender: FDA-Public Use
  Company Number: US-IMPAX LABORATORIES, INC-2015-IPXL-00494

PATIENT
  Age: 15 Year
  Sex: Male
  Weight: 40 kg

DRUGS (8)
  1. LORAZEPAM. [Concomitant]
     Active Substance: LORAZEPAM
     Indication: PRODUCT USED FOR UNKNOWN INDICATION
     Dosage: 0.25 MG, EVERY 6HR
     Route: 042
  2. LORAZEPAM. [Concomitant]
     Active Substance: LORAZEPAM
     Dosage: 0.5 MG EVERY 2H AS NEEDED
     Route: 065
  3. LORAZEPAM. [Concomitant]
     Active Substance: LORAZEPAM
     Dosage: 0.5 MG, EVERY 6HR
     Route: 048
  4. LORAZEPAM. [Concomitant]
     Active Substance: LORAZEPAM
     Dosage: 0.5?1 MG HOURLY
     Route: 065
  5. BACLOFEN. [Suspect]
     Active Substance: BACLOFEN
     Indication: QUADRIPARESIS
     Dosage: 220 ?G, DAILY
     Route: 037
  6. BACLOFEN. [Suspect]
     Active Substance: BACLOFEN
     Dosage: 30 MG, EVERY 6HR
     Route: 048
  7. BACLOFEN. [Suspect]
     Active Substance: BACLOFEN
     Dosage: 25 MG, EVERY 6HR
     Route: 048
  8. BACLOFEN. [Suspect]
     Active Substance: BACLOFEN
     Dosage: 30 MG, 3 /DAY
     Route: 048

REACTIONS (5)
  - Muscle spasticity [Recovered/Resolved]
  - Clonus [Recovered/Resolved]
  - Tachycardia [Recovered/Resolved]
  - Systolic hypertension [Recovered/Resolved]
  - Drug withdrawal syndrome [Recovered/Resolved]
